FAERS Safety Report 11267399 (Version 1)
Quarter: 2015Q3

REPORT INFORMATION
  Report Type: Spontaneous
  Country: CA (occurrence: CA)
  Receive Date: 20150713
  Receipt Date: 20150713
  Transmission Date: 20151125
  Serious: Yes (Other)
  Sender: FDA-Public Use
  Company Number: CA-MYLANLABS-2015M1022999

PATIENT

DRUGS (4)
  1. OXYCONTIN [Interacting]
     Active Substance: OXYCODONE HYDROCHLORIDE
     Indication: NEURALGIA
     Dosage: 40MG (1-2 TABLETS TWICE DAILY)
     Route: 065
     Dates: start: 200707
  2. NORTRIPTYLINE [Interacting]
     Active Substance: NORTRIPTYLINE
     Indication: DEPRESSION
     Route: 065
     Dates: start: 200707
  3. CITALOPRAM [Suspect]
     Active Substance: CITALOPRAM HYDROBROMIDE
     Indication: DEPRESSION
     Dosage: 40MG DAILY
     Route: 065
     Dates: start: 200709
  4. MELATONIN [Interacting]
     Active Substance: MELATONIN
     Indication: DELAYED SLEEP PHASE
     Dosage: 3MG DAILY
     Route: 065
     Dates: start: 200711, end: 200801

REACTIONS (2)
  - Sedation [Recovered/Resolved]
  - Drug interaction [Recovered/Resolved]

NARRATIVE: CASE EVENT DATE: 200711
